FAERS Safety Report 9345055 (Version 1)
Quarter: 2013Q2

REPORT INFORMATION
  Report Type: Spontaneous
  Country: US (occurrence: US)
  Receive Date: 20130612
  Receipt Date: 20130612
  Transmission Date: 20140414
  Serious: No
  Sender: FDA-Public Use
  Company Number: US-BAYER-2013-071178

PATIENT
  Age: 68 Year
  Sex: Female
  Weight: 117.91 kg

DRUGS (11)
  1. ALEVE TABLET [Suspect]
     Indication: ARTHRITIS
     Dosage: 1 DF, BID
     Route: 048
     Dates: start: 2011, end: 2012
  2. BENAZEPRIL W/HYDROCHLOROTHIAZIDE [Concomitant]
  3. CYMBALTA [Concomitant]
  4. METFORMIN [Concomitant]
  5. OMEPRAZOLE [Concomitant]
  6. PRAVACHOL [Concomitant]
  7. SYNTHROID [Concomitant]
  8. PREMARIN [Concomitant]
  9. PREMARIN [Concomitant]
  10. LEVEMIR [Concomitant]
  11. VICTOZA [Concomitant]

REACTIONS (1)
  - Incorrect drug administration duration [None]
